FAERS Safety Report 5386089-4 (Version None)
Quarter: 2007Q3

REPORT INFORMATION
  Report Type: 
  Country: None (occurrence: None)
  Receive Date: 20070710
  Receipt Date: 20070626
  Transmission Date: 20080115
  Serious: Yes (Other)
  Sender: FDA-Public Use
  Company Number: CLOF-10592

PATIENT
  Age: 19 Year
  Sex: Female

DRUGS (5)
  1. CLOFARABINE. MFR: GENZYME [Suspect]
     Indication: ACUTE LYMPHOCYTIC LEUKAEMIA
     Dosage: 52 MG/M2 QD X 5 IV
     Route: 042
     Dates: start: 20070608, end: 20070612
  2. CYTARABINE [Suspect]
     Indication: ACUTE LYMPHOCYTIC LEUKAEMIA
     Dosage: 1000 MG/M2 IV
     Route: 042
     Dates: start: 20070607, end: 20070611
  3. PARCONAZOLE [Concomitant]
  4. BACTRIM. MFR: HOFFMAN-LA ROCHE [Concomitant]
  5. FASTURTEC [Concomitant]

REACTIONS (2)
  - DERMATITIS EXFOLIATIVE [None]
  - SKIN HYPERPIGMENTATION [None]
